FAERS Safety Report 25020373 (Version 1)
Quarter: 2025Q1

REPORT INFORMATION
  Report Type: Spontaneous
  Country: US (occurrence: US)
  Receive Date: 20250227
  Receipt Date: 20250227
  Transmission Date: 20250408
  Serious: No
  Sender: PRIMUS PHARMACEUTICALS
  Company Number: US-PRIMUS-2024-US-029376

PATIENT
  Age: 77 Year
  Sex: Female

DRUGS (3)
  1. SERNIVO [Suspect]
     Active Substance: BETAMETHASONE DIPROPIONATE
     Indication: Rash
     Route: 061
  2. SIMVASTATIN [Concomitant]
     Active Substance: SIMVASTATIN
  3. ANASTROZOLE [Concomitant]
     Active Substance: ANASTROZOLE

REACTIONS (3)
  - Rash [Unknown]
  - Off label use [Unknown]
  - Product administered at inappropriate site [Unknown]
